FAERS Safety Report 10144448 (Version 1)
Quarter: 2014Q2

REPORT INFORMATION
  Report Type: Report from Study
  Country: GB (occurrence: GB)
  Receive Date: 20140430
  Receipt Date: 20140430
  Transmission Date: 20141212
  Serious: Yes (Death)
  Sender: FDA-Public Use
  Company Number: GB-ABBVIE-14P-167-1230964-00

PATIENT
  Sex: Male
  Weight: 121 kg

DRUGS (1)
  1. HUMIRA [Suspect]
     Indication: PSORIASIS
     Route: 058
     Dates: start: 20110525

REACTIONS (2)
  - Addison^s disease [Fatal]
  - Hepatic cirrhosis [Fatal]
